FAERS Safety Report 15255666 (Version 1)
Quarter: 2018Q3

REPORT INFORMATION
  Report Type: Spontaneous
  Country: US (occurrence: US)
  Receive Date: 20180808
  Receipt Date: 20180808
  Transmission Date: 20181010
  Serious: Yes (Life-Threatening, Hospitalization)
  Sender: FDA-Public Use
  Company Number: US-TEVA-2018-US-938944

PATIENT
  Age: 43 Year
  Sex: Female

DRUGS (2)
  1. AMLODIPINE [Suspect]
     Active Substance: AMLODIPINE BESYLATE
     Indication: INTENTIONAL OVERDOSE
     Dosage: 20 TABLETS
     Route: 048
  2. CARVEDILOL. [Suspect]
     Active Substance: CARVEDILOL
     Indication: INTENTIONAL OVERDOSE
     Dosage: 20 TABLETS
     Route: 048

REACTIONS (3)
  - Intentional overdose [Recovering/Resolving]
  - Metabolic acidosis [Recovering/Resolving]
  - Shock [Recovering/Resolving]
